FAERS Safety Report 7724433-0 (Version None)
Quarter: 2011Q3

REPORT INFORMATION
  Report Type: 
  Country: None (occurrence: None)
  Receive Date: 20110901
  Receipt Date: 20110824
  Transmission Date: 20111222
  Serious: Yes (Hospitalization)
  Sender: FDA-Public Use
  Company Number: US-GLAXOSMITHKLINE-A0698897A

PATIENT
  Age: 33 Year
  Sex: Male
  Weight: 91.8 kg

DRUGS (9)
  1. INSULIN [Concomitant]
  2. GEMFIBROZIL [Concomitant]
  3. METFORMIN [Concomitant]
     Dates: start: 20020401, end: 20060501
  4. LOPID [Concomitant]
  5. MULTI-VITAMINS [Concomitant]
  6. GLUCOPHAGE [Concomitant]
     Dosage: 500MG TWICE PER DAY
     Dates: start: 19990101
  7. ASPIRIN [Concomitant]
  8. AVANDIA [Suspect]
     Indication: TYPE 2 DIABETES MELLITUS
     Dosage: 8MG PER DAY
     Route: 048
     Dates: start: 19990728, end: 20070713
  9. ZESTRIL [Concomitant]

REACTIONS (1)
  - MYOCARDIAL INFARCTION [None]
